FAERS Safety Report 22198082 (Version 1)
Quarter: 2023Q2

REPORT INFORMATION
  Report Type: Spontaneous
  Country: GB (occurrence: GB)
  Receive Date: 20230411
  Receipt Date: 20230411
  Transmission Date: 20230721
  Serious: Yes (Other)
  Sender: FDA-Public Use
  Company Number: GB-MHRA-MED-202304051615135360-PSDGT

PATIENT
  Sex: Female

DRUGS (1)
  1. OXALIPLATIN [Suspect]
     Active Substance: OXALIPLATIN
     Indication: Colorectal cancer
     Dosage: 165 MG
     Dates: start: 20230118

REACTIONS (4)
  - Infusion related reaction [Recovered/Resolved]
  - Abdominal pain upper [Unknown]
  - Tachypnoea [Unknown]
  - Flushing [Unknown]

NARRATIVE: CASE EVENT DATE: 20230118
